FAERS Safety Report 11840560 (Version 4)
Quarter: 2016Q3

REPORT INFORMATION
  Report Type: Spontaneous
  Country: US (occurrence: US)
  Receive Date: 20151216
  Receipt Date: 20160701
  Transmission Date: 20161109
  Serious: No
  Sender: FDA-Public Use
  Company Number: US-HORIZON-RAV-0114-2015

PATIENT
  Age: 35 Year
  Sex: Female

DRUGS (1)
  1. RAVICTI [Suspect]
     Active Substance: GLYCEROL PHENYLBUTYRATE
     Indication: ORNITHINE TRANSCARBAMOYLASE DEFICIENCY
     Dosage: 2.4 ML TID
     Route: 048
     Dates: start: 20151117

REACTIONS (3)
  - Nausea [Recovered/Resolved]
  - Underdose [Unknown]
  - Exposure during pregnancy [Recovered/Resolved]
